FAERS Safety Report 8429358-3 (Version None)
Quarter: 2012Q2

REPORT INFORMATION
  Report Type: 
  Country: None (occurrence: None)
  Receive Date: 20120604
  Receipt Date: 20120216
  Transmission Date: 20120825
  Serious: No
  Sender: FDA-Public Use
  Company Number: AEUSA201200089

PATIENT
  Age: 5 Year
  Sex: Male
  Weight: 15.8 kg

DRUGS (1)
  1. ALPHANATE [Suspect]
     Indication: FACTOR VIII DEFICIENCY
     Dosage: 3200 IU, QD, IV
     Route: 042
     Dates: start: 20120126

REACTIONS (1)
  - RASH [None]
